FAERS Safety Report 24141290 (Version 1)
Quarter: 2024Q3

REPORT INFORMATION
  Report Type: Spontaneous
  Country: US (occurrence: None)
  Receive Date: 20240725
  Receipt Date: 20240725
  Transmission Date: 20241016
  Serious: Yes (Disabling)
  Sender: Public
  Company Number: None

PATIENT
  Age: 29 Year
  Sex: Female
  Weight: 85.4 kg

DRUGS (1)
  1. TOPIRAMATE [Suspect]
     Active Substance: TOPIRAMATE
     Indication: Migraine without aura
     Dosage: FREQUENCY : TWICE A DAY;?
     Route: 048
     Dates: start: 20220511, end: 20221223

REACTIONS (3)
  - Tinnitus [None]
  - Deafness [None]
  - Ototoxicity [None]

NARRATIVE: CASE EVENT DATE: 20220930
